FAERS Safety Report 8117034-6 (Version None)
Quarter: 2011Q4

REPORT INFORMATION
  Report Type: 
  Country: None (occurrence: None)
  Receive Date: 20111227
  Receipt Date: 20110610
  Transmission Date: 20120403
  Serious: Yes (Other)
  Sender: FDA-Public Use
  Company Number: PHHY2011US28729

PATIENT
  Sex: Female

DRUGS (10)
  1. FEMARA [Suspect]
     Dosage: 2. 5 MG,
  2. SYNTHROID [Concomitant]
  3. METOPROLOL TARTRATE [Concomitant]
  4. GLUCOSAMINE (GLUCOSAMINE) [Concomitant]
  5. MULTI-VITAMINS [Concomitant]
  6. SYMBICORT [Concomitant]
  7. HYDROCHLOROTHIAZIDE [Concomitant]
  8. AMLODIPINE BESYLATE [Concomitant]
  9. MSM (METHYLSULFONYLMETHANE) [Concomitant]
  10. FISH OIL (FISH OIL) [Concomitant]

REACTIONS (9)
  - CHILLS [None]
  - HYPOAESTHESIA [None]
  - DEPRESSION [None]
  - FEELING HOT [None]
  - NAUSEA [None]
  - MALAISE [None]
  - ANXIETY [None]
  - PAIN [None]
  - INSOMNIA [None]
